FAERS Safety Report 11809915 (Version 2)
Quarter: 2015Q4

REPORT INFORMATION
  Report Type: Report from Study
  Country: CA (occurrence: CA)
  Receive Date: 20151208
  Receipt Date: 20151211
  Transmission Date: 20160305
  Serious: Yes (Other)
  Sender: FDA-Public Use
  Company Number: CA-ROCHE-1576938

PATIENT
  Age: 67 Year
  Sex: Female

DRUGS (18)
  1. DIPHENHYDRAMINE HCL [Concomitant]
     Active Substance: DIPHENHYDRAMINE HYDROCHLORIDE
     Indication: PREMEDICATION
     Route: 048
     Dates: start: 20140625
  2. ARAVA [Concomitant]
     Active Substance: LEFLUNOMIDE
  3. METHYLPREDNISOLONE. [Concomitant]
     Active Substance: METHYLPREDNISOLONE
     Indication: PREMEDICATION
     Route: 042
     Dates: start: 20140625
  4. LOSEC [Concomitant]
     Active Substance: OMEPRAZOLE
  5. ZOPLICONE [Concomitant]
     Active Substance: ZOPICLONE
  6. CRESTOR [Concomitant]
     Active Substance: ROSUVASTATIN CALCIUM
  7. VOLTAREN [Concomitant]
     Active Substance: DICLOFENAC SODIUM
  8. ACTONEL [Concomitant]
     Active Substance: RISEDRONATE SODIUM
  9. ENBREL [Concomitant]
     Active Substance: ETANERCEPT
  10. CYTOTEC [Concomitant]
     Active Substance: MISOPROSTOL
  11. ARTHROTEC [Concomitant]
     Active Substance: DICLOFENAC SODIUM\MISOPROSTOL
  12. RITUXAN [Suspect]
     Active Substance: RITUXIMAB
     Indication: RHEUMATOID ARTHRITIS
     Dosage: FREQUENCY: DAY 1 AND 15?LAST DOSE OF RITUXIMAB  09/JUL/2014
     Route: 042
     Dates: start: 20140625
  13. ACETAMINOPHEN. [Concomitant]
     Active Substance: ACETAMINOPHEN
     Indication: PREMEDICATION
     Route: 048
     Dates: start: 20140625
  14. DICLOFENAC [Concomitant]
     Active Substance: DICLOFENAC
  15. METFORMIN [Concomitant]
     Active Substance: METFORMIN HYDROCHLORIDE
     Indication: DIABETES MELLITUS
  16. ZOLOFT [Concomitant]
     Active Substance: SERTRALINE HYDROCHLORIDE
  17. PLAQUINOL [Concomitant]
     Active Substance: HYDROXYCHLOROQUINE SULFATE
  18. LYRICA [Concomitant]
     Active Substance: PREGABALIN

REACTIONS (7)
  - Oxygen saturation decreased [Unknown]
  - Joint swelling [Not Recovered/Not Resolved]
  - Diabetes mellitus [Not Recovered/Not Resolved]
  - Hypertension [Unknown]
  - Headache [Recovering/Resolving]
  - Oxygen saturation decreased [Unknown]
  - Throat irritation [Recovered/Resolved]

NARRATIVE: CASE EVENT DATE: 201412
